FAERS Safety Report 9450460 (Version 1)
Quarter: 2013Q3

REPORT INFORMATION
  Report Type: Spontaneous
  Country: US (occurrence: US)
  Receive Date: 20130809
  Receipt Date: 20130809
  Transmission Date: 20140515
  Serious: No
  Sender: FDA-Public Use
  Company Number: US-PFIZER INC-2013230316

PATIENT
  Age: 46 Year
  Sex: Female
  Weight: 118 kg

DRUGS (16)
  1. XELJANZ [Suspect]
     Indication: RHEUMATOID ARTHRITIS
     Dosage: 5 MG, 2X/DAY
     Route: 048
     Dates: start: 2013
  2. ATIVAN [Concomitant]
     Dosage: 0.5 MG, UNK
  3. VALIUM [Concomitant]
     Dosage: 2 MG, UNK
  4. HYDROCHLOROTHIAZID [Concomitant]
     Dosage: 12.5 MG, UNK
  5. METHOTREXATE [Concomitant]
     Dosage: 2.5 MG, UNK
  6. FOLIC ACID [Concomitant]
     Dosage: 20 MG, UNK
  7. AMBIEN [Concomitant]
     Dosage: 10 MG, UNK
  8. PERCOCET [Concomitant]
     Dosage: PARACETAMOL 325 MG /OXYCODONE HYDROCHLORIDE 10 MG, UNK
  9. LORTAB [Concomitant]
     Dosage: HYDROCODONE BITARTRATE 5 MG/PARACETAMOL 500MG, UNK
  10. POTASSIUM CITRATE [Concomitant]
     Dosage: UNK
  11. CITRIC ACID [Concomitant]
     Dosage: UNK
  12. PYRIDIUM [Concomitant]
     Dosage: 100 MG, UNK
  13. ALLOPURINOL [Concomitant]
     Dosage: 100 MG, UNK
  14. LEXAPRO [Concomitant]
     Dosage: 10 MG, UNK
  15. LASIX [Concomitant]
     Dosage: 20 MG, UNK
  16. FLOMAX [Concomitant]
     Dosage: 0.4 MG, UNK

REACTIONS (2)
  - Drug effect incomplete [Unknown]
  - Post gastric surgery syndrome [Unknown]
